FAERS Safety Report 18895857 (Version 1)
Quarter: 2021Q1

REPORT INFORMATION
  Report Type: Spontaneous
  Country: DE (occurrence: DE)
  Receive Date: 20210216
  Receipt Date: 20210216
  Transmission Date: 20210420
  Serious: No
  Sender: FDA-Public Use
  Company Number: DE-ALKEM LABORATORIES LIMITED-DE-ALKEM-2021-00138

PATIENT
  Age: 52 Year
  Sex: Female

DRUGS (12)
  1. PERGOLIDE [Suspect]
     Active Substance: PERGOLIDE
     Indication: RESTLESS LEGS SYNDROME
     Dosage: UNK
     Route: 065
  2. PREGABALIN. [Suspect]
     Active Substance: PREGABALIN
     Dosage: 100 MILLIGRAM, QD
     Route: 065
  3. ROPINIROLE. [Suspect]
     Active Substance: ROPINIROLE
     Indication: RESTLESS LEGS SYNDROME
     Dosage: UNK
     Route: 065
  4. TILIDINE [Suspect]
     Active Substance: TILIDINE
     Indication: RESTLESS LEGS SYNDROME
     Dosage: 400 MILLIGRAM, QD
     Route: 065
  5. ROTIGOTINE [Suspect]
     Active Substance: ROTIGOTINE
     Indication: RESTLESS LEGS SYNDROME
     Dosage: 3 MILLIGRAM, QD
     Route: 065
  6. PREGABALIN. [Suspect]
     Active Substance: PREGABALIN
     Indication: RESTLESS LEGS SYNDROME
     Dosage: 50 MILLIGRAM, BID
     Route: 065
  7. NALOXONE, OXYCODONE [Suspect]
     Active Substance: NALOXONE HYDROCHLORIDE\OXYCODONE HYDROCHLORIDE
     Indication: RESTLESS LEGS SYNDROME
     Dosage: 17.5/35 MG RET. DAILY
     Route: 065
  8. CABERGOLINE. [Suspect]
     Active Substance: CABERGOLINE
     Indication: RESTLESS LEGS SYNDROME
     Dosage: UNK
     Route: 065
  9. TILIDINE [Suspect]
     Active Substance: TILIDINE
     Dosage: 25 MILLIGRAM (SOS)
     Route: 065
  10. PRAMIPEXOLE. [Suspect]
     Active Substance: PRAMIPEXOLE
     Dosage: 0.36 MILLIGRAM, QD
     Route: 065
  11. GABAPENTIN. [Suspect]
     Active Substance: GABAPENTIN
     Indication: RESTLESS LEGS SYNDROME
     Dosage: 900 MILLIGRAM, QD
     Route: 065
  12. PRAMIPEXOLE. [Suspect]
     Active Substance: PRAMIPEXOLE
     Indication: RESTLESS LEGS SYNDROME
     Dosage: 0.54 MILLIGRAM, QD
     Route: 065

REACTIONS (4)
  - Sleep deficit [Not Recovered/Not Resolved]
  - Drug effect less than expected [Unknown]
  - Somnolence [Not Recovered/Not Resolved]
  - Drug intolerance [Unknown]
